FAERS Safety Report 19894595 (Version 1)
Quarter: 2021Q3

REPORT INFORMATION
  Report Type: Spontaneous
  Country: US (occurrence: US)
  Receive Date: 20210928
  Receipt Date: 20210928
  Transmission Date: 20211014
  Serious: No
  Sender: FDA-Public Use
  Company Number: None

PATIENT

DRUGS (1)
  1. D5W IV [Suspect]
     Active Substance: DEXTROSE

REACTIONS (2)
  - Product storage error [None]
  - Wrong product administered [None]
